FAERS Safety Report 23941605 (Version 2)
Quarter: 2024Q3

REPORT INFORMATION
  Report Type: Spontaneous
  Country: VE (occurrence: VE)
  Receive Date: 20240605
  Receipt Date: 20240726
  Transmission Date: 20241016
  Serious: Yes (Life-Threatening, Hospitalization)
  Sender: ROCHE
  Company Number: VE-ROCHE-3574610

PATIENT
  Age: 52 Year
  Sex: Male

DRUGS (6)
  1. MABTHERA [Suspect]
     Active Substance: RITUXIMAB
     Indication: Hairy cell leukaemia
     Route: 065
  2. MABTHERA [Suspect]
     Active Substance: RITUXIMAB
     Indication: Hairy cell leukaemia
     Dosage: INDUCTION
     Route: 041
     Dates: start: 202403
  3. MABTHERA [Suspect]
     Active Substance: RITUXIMAB
     Dosage: MAINTENANCE
     Route: 041
     Dates: start: 20240422, end: 20240422
  4. CLADRIBINE [Concomitant]
     Active Substance: CLADRIBINE
     Dates: start: 202403
  5. HYDROCORTISONE [Concomitant]
     Active Substance: HYDROCORTISONE\HYDROCORTISONE ACETATE
     Dates: start: 202403
  6. PALONOSETRON [Concomitant]
     Active Substance: PALONOSETRON
     Dates: start: 202403

REACTIONS (9)
  - Deep vein thrombosis [Recovered/Resolved]
  - Cellulitis [Recovered/Resolved]
  - Off label use [Unknown]
  - Neutropenia [Recovered/Resolved]
  - Oedema peripheral [Recovered/Resolved]
  - Face oedema [Unknown]
  - Hyperhidrosis [Unknown]
  - Pallor [Unknown]
  - Laryngeal oedema [Unknown]

NARRATIVE: CASE EVENT DATE: 20240301
